FAERS Safety Report 6930646-8 (Version None)
Quarter: 2010Q3

REPORT INFORMATION
  Report Type: 
  Country: None (occurrence: None)
  Receive Date: 20100818
  Receipt Date: 20100421
  Transmission Date: 20110219
  Serious: No
  Sender: FDA-Public Use
  Company Number: A0856109A

PATIENT
  Sex: Female

DRUGS (12)
  1. COREG CR [Suspect]
     Dosage: 40MG PER DAY
     Route: 048
     Dates: start: 20100414
  2. UNKNOWN MEDICATION [Concomitant]
  3. DARVOCET [Concomitant]
  4. ADVAIR DISKUS 100/50 [Concomitant]
  5. ZYRTEC [Concomitant]
  6. COUMADIN [Concomitant]
  7. RESTORIL [Concomitant]
  8. FEMARA [Concomitant]
  9. KEFLEX [Concomitant]
  10. VITAMIN B-12 [Concomitant]
  11. NYSTATIN [Concomitant]
  12. ADRIAMYCIN PFS [Concomitant]
     Indication: BREAST CANCER

REACTIONS (2)
  - DYSPNOEA [None]
  - GAIT DISTURBANCE [None]
